FAERS Safety Report 21731797 (Version 4)
Quarter: 2023Q1

REPORT INFORMATION
  Report Type: Report from Study
  Country: ES (occurrence: ES)
  Receive Date: 20221215
  Receipt Date: 20230328
  Transmission Date: 20230417
  Serious: Yes (Hospitalization)
  Sender: FDA-Public Use
  Company Number: ES-ABBVIE-4197281

PATIENT
  Age: 66 Year
  Sex: Female
  Weight: 95 kg

DRUGS (4)
  1. CARBIDOPA\LEVODOPA [Suspect]
     Active Substance: CARBIDOPA\LEVODOPA
     Indication: Parkinson^s disease
     Route: 050
     Dates: start: 20180406, end: 202211
  2. CARBIDOPA\LEVODOPA [Suspect]
     Active Substance: CARBIDOPA\LEVODOPA
     Dosage: DOSE ADJUSTED
     Route: 050
     Dates: start: 202211
  3. CARBIDOPA\LEVODOPA [Suspect]
     Active Substance: CARBIDOPA\LEVODOPA
     Dosage: CONTINUOUS DOSE WAS DECREASED BY 0.2
     Route: 050
     Dates: start: 202211, end: 202211
  4. APOMORPHINE [Concomitant]
     Active Substance: APOMORPHINE
     Indication: Product used for unknown indication
     Dosage: PEN

REACTIONS (18)
  - Blood potassium decreased [Unknown]
  - Tremor [Not Recovered/Not Resolved]
  - Stoma site haemorrhage [Recovered/Resolved]
  - Anaemia [Unknown]
  - Stoma site discharge [Unknown]
  - Nervousness [Not Recovered/Not Resolved]
  - Movement disorder [Recovered/Resolved]
  - Cognitive disorder [Not Recovered/Not Resolved]
  - Condition aggravated [Unknown]
  - Limb discomfort [Unknown]
  - On and off phenomenon [Unknown]
  - Musculoskeletal stiffness [Unknown]
  - Device difficult to use [Recovered/Resolved]
  - Gait disturbance [Not Recovered/Not Resolved]
  - Dyskinesia [Not Recovered/Not Resolved]
  - Movement disorder [Not Recovered/Not Resolved]
  - Therapeutic product effect incomplete [Not Recovered/Not Resolved]
  - Renal impairment [Unknown]

NARRATIVE: CASE EVENT DATE: 20221031
